FAERS Safety Report 16066090 (Version 1)
Quarter: 2019Q2

REPORT INFORMATION
  Report Type: Spontaneous
  Country: US (occurrence: US)
  Receive Date: 20190312
  Receipt Date: 20190312
  Transmission Date: 20190711
  Serious: Yes (Life-Threatening)
  Sender: FDA-Public Use
  Company Number: None

PATIENT
  Age: 6 Year
  Sex: Female
  Weight: 31.5 kg

DRUGS (1)
  1. CORTEF [Suspect]
     Active Substance: HYDROCORTISONE
     Indication: SECONDARY ADRENOCORTICAL INSUFFICIENCY
     Dosage: ?          QUANTITY:1 TABLET(S);?
     Route: 048
     Dates: start: 20140901, end: 20150105

REACTIONS (7)
  - General physical health deterioration [None]
  - Drug ineffective [None]
  - Paradoxical drug reaction [None]
  - Product quality issue [None]
  - Manufacturing materials issue [None]
  - Product physical issue [None]
  - Product substitution issue [None]

NARRATIVE: CASE EVENT DATE: 20150102
